FAERS Safety Report 9352817 (Version 2)
Quarter: 2013Q3

REPORT INFORMATION
  Report Type: Spontaneous
  Country: GB (occurrence: GB)
  Receive Date: 20130618
  Receipt Date: 20130823
  Transmission Date: 20140515
  Serious: Yes (Hospitalization)
  Sender: FDA-Public Use
  Company Number: GB-BIOGENIDEC-2013BI052222

PATIENT
  Age: 28 Year
  Sex: Female
  Weight: 56 kg

DRUGS (2)
  1. TYSABRI [Suspect]
     Indication: MULTIPLE SCLEROSIS
     Route: 048
     Dates: start: 20080701, end: 20121127
  2. FRAGMIN [Concomitant]
     Indication: ANTICOAGULANT THERAPY
     Dates: end: 20130319

REACTIONS (1)
  - No adverse event [Unknown]
